FAERS Safety Report 6197460-5 (Version None)
Quarter: 2009Q2

REPORT INFORMATION
  Report Type: 
  Country: None (occurrence: None)
  Receive Date: 20090521
  Receipt Date: 20090325
  Transmission Date: 20091009
  Serious: No
  Sender: FDA-Public Use
  Company Number: US-TEVA-189294USA

PATIENT
  Age: 59 Year
  Sex: Male

DRUGS (2)
  1. AZILECT [Suspect]
     Indication: PARKINSON'S DISEASE
     Route: 048
  2. SINEMET [Concomitant]

REACTIONS (1)
  - DYSKINESIA [None]
